FAERS Safety Report 25538440 (Version 2)
Quarter: 2025Q3

REPORT INFORMATION
  Report Type: Spontaneous
  Country: EU (occurrence: EU)
  Receive Date: 20250710
  Receipt Date: 20250715
  Transmission Date: 20251021
  Serious: Yes (Hospitalization, Other)
  Sender: MACLEODS
  Company Number: EU-MACLEODS PHARMA-MAC2025053952

PATIENT

DRUGS (2)
  1. ROSUVASTATIN [Suspect]
     Active Substance: ROSUVASTATIN
     Indication: Lipids increased
     Route: 065
  2. ROSUVASTATIN [Suspect]
     Active Substance: ROSUVASTATIN
     Indication: Acute myocardial infarction

REACTIONS (4)
  - Drug intolerance [Unknown]
  - Acute kidney injury [Recovered/Resolved]
  - Drug clearance decreased [Recovered/Resolved]
  - Rhabdomyolysis [Recovered/Resolved]
